FAERS Safety Report 21638090 (Version 1)
Quarter: 2022Q4

REPORT INFORMATION
  Report Type: Spontaneous
  Country: CN (occurrence: CN)
  Receive Date: 20221124
  Receipt Date: 20221124
  Transmission Date: 20230113
  Serious: Yes (Hospitalization, Other)
  Sender: FDA-Public Use
  Company Number: CN-Accord-287908

PATIENT
  Age: 54 Year
  Sex: Female

DRUGS (3)
  1. DECITABINE [Suspect]
     Active Substance: DECITABINE
     Indication: Chronic myelomonocytic leukaemia
     Dosage: 20 MG/M2, D1-5
     Dates: start: 20200702, end: 20200820
  2. OMACETAXINE MEPESUCCINATE [Suspect]
     Active Substance: OMACETAXINE MEPESUCCINATE
     Indication: Chronic myelomonocytic leukaemia
     Dosage: 2 MG/ M2, D1-7
     Dates: start: 20200702, end: 20200820
  3. CYTARABINE [Suspect]
     Active Substance: CYTARABINE
     Indication: Chronic myelomonocytic leukaemia
     Dosage: 10 MG/M2, Q12H, D1-10
     Dates: start: 20200702, end: 20200820

REACTIONS (2)
  - Bone marrow failure [Not Recovered/Not Resolved]
  - Pancytopenia [Not Recovered/Not Resolved]
